FAERS Safety Report 8736424 (Version 2)
Quarter: 2012Q4

REPORT INFORMATION
  Report Type: 
  Country: FR (occurrence: FR)
  Receive Date: 20120822
  Receipt Date: 20121211
  Transmission Date: 20130627
  Serious: Yes (Life-Threatening, Hospitalization)
  Sender: FDA-Public Use
  Company Number: FR-ROCHE-1103080

PATIENT
  Age: 42 Year
  Sex: Female

DRUGS (4)
  1. CELLCEPT [Suspect]
     Indication: PRODUCT USED FOR UNKNOWN INDICATION
     Route: 065
     Dates: start: 20120510
  2. CORTANCYL [Concomitant]
  3. LEVOTHYROX [Concomitant]
  4. LOXEN LP 50 [Concomitant]
     Dosage: 2 tablets daily
     Route: 065

REACTIONS (2)
  - Hepatitis cholestatic [Unknown]
  - Hepatic steatosis [Unknown]
